FAERS Safety Report 9580507 (Version 1)
Quarter: 2013Q4

REPORT INFORMATION
  Report Type: Spontaneous
  Country: US (occurrence: None)
  Receive Date: 20131001
  Receipt Date: 20131001
  Transmission Date: 20140711
  Serious: No
  Sender: FDA-Public Use
  Company Number: None

PATIENT
  Age: 65 Year
  Sex: Female
  Weight: 122.4 kg

DRUGS (3)
  1. 5-FLUOROURACIL [Suspect]
  2. LEUCOVORIN [Suspect]
  3. OXALIPLATIN [Suspect]

REACTIONS (3)
  - Dyspnoea exertional [None]
  - Acute respiratory failure [None]
  - Weight increased [None]
